FAERS Safety Report 6172603-8 (Version None)
Quarter: 2009Q2

REPORT INFORMATION
  Report Type: 
  Country: None (occurrence: None)
  Receive Date: 20090428
  Receipt Date: 20090415
  Transmission Date: 20091009
  Serious: Yes (Other)
  Sender: FDA-Public Use
  Company Number: 233058K09USA

PATIENT
  Age: 54 Year
  Sex: Male
  Weight: 107 kg

DRUGS (3)
  1. REBIF [Suspect]
  2. ENALAPRIL(ENALAPRIL /00574901/) [Concomitant]
  3. ASPIRIN [Concomitant]

REACTIONS (4)
  - AGEUSIA [None]
  - ANOSMIA [None]
  - NASAL CONGESTION [None]
  - NASOPHARYNGITIS [None]
